FAERS Safety Report 23437943 (Version 2)
Quarter: 2024Q2

REPORT INFORMATION
  Report Type: Spontaneous
  Country: US (occurrence: US)
  Receive Date: 20240124
  Receipt Date: 20240427
  Transmission Date: 20240717
  Serious: No
  Sender: FDA-Public Use
  Company Number: US-AstraZeneca-CH-00549360A

PATIENT
  Age: 41 Year
  Sex: Female

DRUGS (1)
  1. SOLIRIS [Suspect]
     Active Substance: ECULIZUMAB
     Indication: Neuromyelitis optica spectrum disorder
     Dosage: 1200 MILLIGRAM, Q2W
     Route: 042
     Dates: start: 201101

REACTIONS (1)
  - Tooth loss [Not Recovered/Not Resolved]

NARRATIVE: CASE EVENT DATE: 20240118
